FAERS Safety Report 4855355-0 (Version None)
Quarter: 2005Q4

REPORT INFORMATION
  Report Type: 
  Country: None (occurrence: None)
  Receive Date: 20051125
  Receipt Date: 20050622
  Transmission Date: 20060501
  Serious: Yes (Life-Threatening)
  Sender: FDA-Public Use
  Company Number: US-JNJFOC-20050606426

PATIENT
  Sex: Male

DRUGS (1)
  1. LEVAQUIN [Suspect]

REACTIONS (1)
  - ANAPHYLACTIC SHOCK [None]
